FAERS Safety Report 7549797-2 (Version None)
Quarter: 2011Q2

REPORT INFORMATION
  Report Type: 
  Country: None (occurrence: None)
  Receive Date: 20110615
  Receipt Date: 20080331
  Transmission Date: 20111010
  Serious: Yes (Death, Hospitalization)
  Sender: FDA-Public Use
  Company Number: PHMT2007CA01977

PATIENT
  Sex: Female

DRUGS (7)
  1. POTASSIUM CHLORIDE [Concomitant]
     Dosage: UNK, UNK
  2. HYDROCHLOROTHIAZIDE [Concomitant]
     Dosage: UNK, UNK
  3. SANDOSTATIN LAR [Suspect]
     Indication: CARCINOID TUMOUR
     Dosage: 30 MG, UNK
     Route: 030
     Dates: start: 20070703, end: 20080221
  4. NOVAMILOR [Concomitant]
     Dosage: UNK, QD
  5. EUROCAL D [Concomitant]
     Dosage: UNK, UNK
  6. RADIATION TREATMENT [Concomitant]
  7. SIMVASTATIN [Concomitant]
     Dosage: 10 MG, QHS

REACTIONS (6)
  - HAEMORRHAGE [None]
  - RADIATION EXPOSURE [None]
  - HYPOPHAGIA [None]
  - MALAISE [None]
  - DEATH [None]
  - GASTRITIS EROSIVE [None]
